FAERS Safety Report 9705977 (Version 2)
Quarter: 2014Q4

REPORT INFORMATION
  Report Type: Spontaneous
  Country: JP (occurrence: JP)
  Receive Date: 20131122
  Receipt Date: 20141023
  Transmission Date: 20150529
  Serious: Yes (Other)
  Sender: FDA-Public Use
  Company Number: JP-GLAXOSMITHKLINE-B0947309A

PATIENT

DRUGS (3)
  1. SEIBULE [Concomitant]
     Active Substance: MIGLITOL
     Indication: DIABETES MELLITUS
     Route: 048
  2. VALACICLOVIR HYDROCHLORIDE [Suspect]
     Active Substance: VALACYCLOVIR HYDROCHLORIDE
     Indication: HERPES ZOSTER
     Route: 048
     Dates: start: 20131118, end: 20131119
  3. METGLUCO [Concomitant]
     Active Substance: METFORMIN HYDROCHLORIDE
     Indication: DIABETES MELLITUS
     Route: 048

REACTIONS (9)
  - Disorientation [Unknown]
  - Overdose [Unknown]
  - Abnormal behaviour [Unknown]
  - Gait deviation [Unknown]
  - Toxic encephalopathy [Unknown]
  - Dyslalia [Unknown]
  - Anger [Unknown]
  - Dysarthria [Unknown]
  - Renal impairment [Unknown]

NARRATIVE: CASE EVENT DATE: 201311
